FAERS Safety Report 11516423 (Version 1)
Quarter: 2015Q3

REPORT INFORMATION
  Report Type: Spontaneous
  Country: US (occurrence: None)
  Receive Date: 20150915
  Receipt Date: 20150915
  Transmission Date: 20151125
  Serious: Yes (Other)
  Sender: FDA-Public Use
  Company Number: PI15-0016173

PATIENT
  Sex: Female

DRUGS (1)
  1. MICONAZOLE NITRATE 2% CREAM AND 1200MG SUPPOSITORY [Suspect]
     Active Substance: MICONAZOLE NITRATE
     Route: 067

REACTIONS (7)
  - Contusion [None]
  - Chemical burn of skin [None]
  - Pain [None]
  - Mass [None]
  - Blister [None]
  - Drug ineffective [None]
  - Burning sensation [None]
